FAERS Safety Report 24124467 (Version 1)
Quarter: 2024Q3

REPORT INFORMATION
  Report Type: Report from Study
  Country: US (occurrence: None)
  Receive Date: 20240723
  Receipt Date: 20240723
  Transmission Date: 20241016
  Serious: Yes (Other)
  Sender: ASTRAZENECA
  Company Number: 2022A118059

PATIENT
  Age: 48 Year
  Sex: Female
  Weight: 79.8 kg

DRUGS (1)
  1. LYNPARZA [Suspect]
     Active Substance: OLAPARIB
     Indication: Breast cancer female
     Route: 048
     Dates: start: 20220204

REACTIONS (5)
  - Rhinorrhoea [Unknown]
  - Pain [Unknown]
  - Bone pain [Unknown]
  - Myalgia [Unknown]
  - Cough [Unknown]
